FAERS Safety Report 17751840 (Version 1)
Quarter: 2020Q2

REPORT INFORMATION
  Report Type: Spontaneous
  Country: US (occurrence: US)
  Receive Date: 20200506
  Receipt Date: 20200506
  Transmission Date: 20200714
  Serious: Yes (Other)
  Sender: FDA-Public Use
  Company Number: US-PFIZER INC-2020178239

PATIENT
  Age: 60 Year
  Sex: Female
  Weight: 72.56 kg

DRUGS (4)
  1. PREDNISONE. [Concomitant]
     Active Substance: PREDNISONE
     Indication: LARYNGITIS
  2. TESSALON [Suspect]
     Active Substance: BENZONATATE
     Indication: COUGH
     Dosage: UNK
     Dates: start: 20191220
  3. PREDNISONE. [Concomitant]
     Active Substance: PREDNISONE
     Indication: COUGH
     Dosage: UNK
     Dates: start: 20191220
  4. TESSALON [Suspect]
     Active Substance: BENZONATATE
     Indication: LARYNGITIS

REACTIONS (2)
  - Drug ineffective [Unknown]
  - Seizure [Unknown]

NARRATIVE: CASE EVENT DATE: 20200430
